FAERS Safety Report 5505037-7 (Version None)
Quarter: 2007Q4

REPORT INFORMATION
  Report Type: 
  Country: None (occurrence: None)
  Receive Date: 20071102
  Receipt Date: 20071025
  Transmission Date: 20080405
  Serious: Yes (Hospitalization)
  Sender: FDA-Public Use
  Company Number: CN-ROCHE-489908

PATIENT
  Age: 23 Year
  Sex: Female
  Weight: 58 kg

DRUGS (5)
  1. CELLCEPT [Suspect]
     Indication: LUPUS NEPHRITIS
     Dosage: MAINTENANCE PHASE
     Route: 048
     Dates: start: 20070130, end: 20070327
  2. CELLCEPT [Suspect]
     Dosage: INDUCTION PHASE
     Route: 048
     Dates: start: 20060605, end: 20061108
  3. PLACEBO [Suspect]
     Indication: LUPUS NEPHRITIS
     Dosage: MAINTENANCE PHASE
     Route: 048
     Dates: start: 20070130, end: 20070327
  4. PREDNISONE [Suspect]
     Indication: LUPUS NEPHRITIS
     Route: 048
     Dates: start: 20060828
  5. FAMOTIDINE [Concomitant]
     Dates: start: 20060322

REACTIONS (1)
  - DISSEMINATED TUBERCULOSIS [None]
